FAERS Safety Report 13212843 (Version 4)
Quarter: 2017Q2

REPORT INFORMATION
  Report Type: Spontaneous
  Country: US (occurrence: US)
  Receive Date: 20170210
  Receipt Date: 20170418
  Transmission Date: 20170830
  Serious: Yes (Hospitalization, Other)
  Sender: FDA-Public Use
  Company Number: US-009507513-1702USA002208

PATIENT
  Sex: Male

DRUGS (1)
  1. PROPECIA [Suspect]
     Active Substance: FINASTERIDE
     Indication: ALOPECIA
     Dosage: 1 MG, QD
     Route: 048
     Dates: start: 20041026, end: 200610

REACTIONS (24)
  - Suicidal ideation [Unknown]
  - Brain injury [Unknown]
  - Sexual dysfunction [Not Recovered/Not Resolved]
  - Hypoaesthesia [Unknown]
  - Fall [Unknown]
  - Anxiety [Unknown]
  - Blood pressure abnormal [Unknown]
  - Depression [Unknown]
  - Tobacco user [Recovered/Resolved]
  - Paraesthesia [Unknown]
  - Adjustment disorder [Unknown]
  - Hyperlipidaemia [Unknown]
  - Arthropathy [Unknown]
  - Endocrine disorder [Unknown]
  - Colonoscopy [Unknown]
  - Colonoscopy [Unknown]
  - Shoulder operation [Unknown]
  - Organic erectile dysfunction [Not Recovered/Not Resolved]
  - Loss of libido [Unknown]
  - Lipoma [Unknown]
  - Pain in extremity [Unknown]
  - Penis injury [Unknown]
  - Toe operation [Unknown]
  - Colonoscopy [Unknown]

NARRATIVE: CASE EVENT DATE: 20041130
